FAERS Safety Report 20668306 (Version 3)
Quarter: 2022Q2

REPORT INFORMATION
  Report Type: Spontaneous
  Country: ES (occurrence: ES)
  Receive Date: 20220404
  Receipt Date: 20220625
  Transmission Date: 20220721
  Serious: Yes (Death, Life-Threatening, Hospitalization, Disabling, Other)
  Sender: FDA-Public Use
  Company Number: ES-AEMPS-700659

PATIENT
  Age: 80 Year
  Sex: Female

DRUGS (8)
  1. ATORVASTATIN [Suspect]
     Active Substance: ATORVASTATIN
     Indication: Product used for unknown indication
     Dosage: HIGH STATIN DOSE
  2. CLOPIDOGREL [Concomitant]
     Active Substance: CLOPIDOGREL BISULFATE
  3. BISOPROLOL [Concomitant]
     Active Substance: BISOPROLOL
  4. ZOLPIDEM [Concomitant]
     Active Substance: ZOLPIDEM TARTRATE
  5. ASPIRIN [Concomitant]
     Active Substance: ASPIRIN
  6. PANTOPRAZOLE [Concomitant]
     Active Substance: PANTOPRAZOLE
  7. RAMIPRIL [Concomitant]
     Active Substance: RAMIPRIL
  8. RAMIPRIL [Concomitant]
     Active Substance: RAMIPRIL

REACTIONS (6)
  - Rhabdomyolysis [Fatal]
  - Alanine aminotransferase increased [Unknown]
  - Haemodynamic instability [Unknown]
  - Aspartate aminotransferase increased [Unknown]
  - Abdominal pain [Unknown]
  - Blood creatine phosphokinase increased [Unknown]
